FAERS Safety Report 13733966 (Version 7)
Quarter: 2019Q3

REPORT INFORMATION
  Report Type: Report from Study
  Country: JP (occurrence: JP)
  Receive Date: 20170708
  Receipt Date: 20190823
  Transmission Date: 20191004
  Serious: Yes (Death, Life-Threatening, Other)
  Sender: FDA-Public Use
  Company Number: JP-AMGEN-JPNCT2017102849

PATIENT
  Age: 28 Year
  Sex: Female
  Weight: 51 kg

DRUGS (67)
  1. ROMIPLOSTIM [Suspect]
     Active Substance: ROMIPLOSTIM
     Dosage: 1 MUG/KG, Q2WK
     Route: 058
     Dates: start: 20150122, end: 20150204
  2. MEDROL [Suspect]
     Active Substance: METHYLPREDNISOLONE
     Dosage: 20 MG, UNK
     Route: 048
     Dates: start: 20140414, end: 20140420
  3. MEDROL [Suspect]
     Active Substance: METHYLPREDNISOLONE
     Dosage: 12 MG, UNK
     Route: 048
     Dates: start: 20140508, end: 20140611
  4. MEDROLONE [Suspect]
     Active Substance: METHYLPREDNISOLONE SODIUM SUCCINATE
     Dosage: 16 MG, UNK
     Route: 048
     Dates: start: 20150122, end: 20150225
  5. REVOLADE [Concomitant]
     Active Substance: ELTROMBOPAG
     Indication: IMMUNE THROMBOCYTOPENIC PURPURA
     Dosage: 50 MG, UNK
     Route: 048
     Dates: start: 20140206, end: 20140217
  6. TRAZENTA [Concomitant]
     Active Substance: LINAGLIPTIN
     Indication: DIABETES MELLITUS
     Dosage: UNK
     Route: 048
  7. MEDROL [Suspect]
     Active Substance: METHYLPREDNISOLONE
     Dosage: 28 MILLIGRAM
     Route: 048
     Dates: start: 20140331, end: 20140406
  8. MEDROL [Suspect]
     Active Substance: METHYLPREDNISOLONE
     Dosage: 10 MG, UNK
     Route: 048
     Dates: start: 20140612, end: 20141022
  9. MEDROLONE [Suspect]
     Active Substance: METHYLPREDNISOLONE SODIUM SUCCINATE
     Dosage: 32 MG, UNK
     Route: 048
     Dates: start: 20140325, end: 20140330
  10. BAKTAR [Concomitant]
     Active Substance: SULFAMETHOXAZOLE\TRIMETHOPRIM
     Indication: PROPHYLAXIS
     Dosage: UNK
     Route: 048
  11. BAYASPIRIN [Concomitant]
     Active Substance: ASPIRIN
     Indication: VASCULITIS
     Dosage: UNK
     Route: 048
  12. URSODEOXYCHOLIC ACID [Concomitant]
     Active Substance: URSODIOL
     Indication: HEPATIC STEATOSIS
     Dosage: UNK
     Route: 048
  13. FAMOTIDINE. [Concomitant]
     Active Substance: FAMOTIDINE
     Dosage: UNK
     Route: 048
  14. ROMIPLOSTIM [Suspect]
     Active Substance: ROMIPLOSTIM
     Dosage: 1 MUG/KG, QWK
     Route: 058
     Dates: start: 20140529, end: 20140605
  15. ROMIPLOSTIM [Suspect]
     Active Substance: ROMIPLOSTIM
     Dosage: 1 MUG/KG, QWK
     Route: 058
     Dates: start: 20140619, end: 20140626
  16. MEDROL [Suspect]
     Active Substance: METHYLPREDNISOLONE
     Dosage: 16 MG, UNK
     Route: 048
     Dates: start: 20140421, end: 20140430
  17. MEDROL [Suspect]
     Active Substance: METHYLPREDNISOLONE
     Dosage: 14 MG, UNK
     Route: 048
     Dates: start: 20140501, end: 20140507
  18. MEDROLONE [Suspect]
     Active Substance: METHYLPREDNISOLONE SODIUM SUCCINATE
     Dosage: 16 MG, UNK
     Route: 048
     Dates: start: 20140421, end: 20140430
  19. POSTERISAN [Concomitant]
     Active Substance: LIDOCAINE
     Indication: HAEMORRHOIDS
     Dosage: UNK
     Route: 061
  20. URSODEOXYCHOLIC ACID [Concomitant]
     Active Substance: URSODIOL
     Dosage: UNK
     Route: 048
  21. LOXOPROFEN SODIUM HYDRATE [Concomitant]
     Active Substance: LOXOPROFEN SODIUM DIHYDRATE
     Dosage: UNK
     Route: 048
  22. ROMIPLOSTIM [Suspect]
     Active Substance: ROMIPLOSTIM
     Indication: IMMUNE THROMBOCYTOPENIC PURPURA
     Dosage: 1 MUG/KG, UNK
     Route: 058
     Dates: start: 20140225, end: 20140225
  23. MEDROL [Suspect]
     Active Substance: METHYLPREDNISOLONE
     Dosage: 8 MILLIGRAM
     Route: 048
     Dates: start: 20141023, end: 20141105
  24. MEDROLONE [Suspect]
     Active Substance: METHYLPREDNISOLONE SODIUM SUCCINATE
     Dosage: 8 MG, UNK
     Route: 048
     Dates: start: 20141023, end: 20141105
  25. SOLU-CORTEF [Suspect]
     Active Substance: HYDROCORTISONE SODIUM SUCCINATE
     Indication: IMMUNE THROMBOCYTOPENIC PURPURA
     Dosage: 200 MG, UNK
     Route: 065
     Dates: start: 20140302, end: 20140302
  26. GLYCYRON [Concomitant]
     Indication: HEPATIC STEATOSIS
     Dosage: UNK
     Route: 048
  27. TRAZENTA [Concomitant]
     Active Substance: LINAGLIPTIN
     Dosage: UNK
     Route: 048
  28. GEBEN [Concomitant]
     Active Substance: SILVER SULFADIAZINE
     Indication: VASCULITIS
     Dosage: UNK
     Route: 061
  29. FOSAMAC [Concomitant]
     Active Substance: ALENDRONATE SODIUM
     Dosage: UNK
     Route: 048
  30. ROMIPLOSTIM [Suspect]
     Active Substance: ROMIPLOSTIM
     Dosage: 2 MUG/KG, UNK
     Route: 058
     Dates: start: 20140304, end: 20140304
  31. ROMIPLOSTIM [Suspect]
     Active Substance: ROMIPLOSTIM
     Dosage: 2.5 MUG/KG, UNK
     Route: 058
     Dates: start: 20140409, end: 20140409
  32. ROMIPLOSTIM [Suspect]
     Active Substance: ROMIPLOSTIM
     Dosage: 1 MUG/KG, Q2WK
     Route: 058
     Dates: start: 20140717, end: 20140731
  33. ROMIPLOSTIM [Suspect]
     Active Substance: ROMIPLOSTIM
     Dosage: 1 MUG/KG, Q4WK
     Route: 058
     Dates: start: 20141211, end: 20150108
  34. ROMIPLOSTIM [Suspect]
     Active Substance: ROMIPLOSTIM
     Dosage: 2 MUG/KG, QWK
     Route: 058
     Dates: start: 20150210
  35. MEDROL [Suspect]
     Active Substance: METHYLPREDNISOLONE
     Indication: IMMUNE THROMBOCYTOPENIC PURPURA
     Dosage: 40 MILLIGRAM
     Route: 048
     Dates: start: 20140208, end: 20140223
  36. MEDROL [Suspect]
     Active Substance: METHYLPREDNISOLONE
     Dosage: 36 MILLIGRAM
     Route: 048
     Dates: start: 20140224, end: 20140324
  37. SOLU-MEDROL [Suspect]
     Active Substance: METHYLPREDNISOLONE SODIUM SUCCINATE
     Indication: IMMUNE THROMBOCYTOPENIC PURPURA
     Dosage: 250 MG, UNK
     Route: 065
     Dates: start: 20140306, end: 20140306
  38. MEDROLONE [Suspect]
     Active Substance: METHYLPREDNISOLONE SODIUM SUCCINATE
     Indication: IMMUNE THROMBOCYTOPENIC PURPURA
     Dosage: 40 MG, UNK
     Route: 048
     Dates: start: 20140208, end: 20140223
  39. MEDROLONE [Suspect]
     Active Substance: METHYLPREDNISOLONE SODIUM SUCCINATE
     Dosage: 36 MG, UNK
     Route: 048
     Dates: start: 20140224, end: 20140324
  40. MEDROLONE [Suspect]
     Active Substance: METHYLPREDNISOLONE SODIUM SUCCINATE
     Dosage: 20 MG, UNK
     Route: 048
     Dates: start: 20140414, end: 20140420
  41. MEDROLONE [Suspect]
     Active Substance: METHYLPREDNISOLONE SODIUM SUCCINATE
     Dosage: 14 MG, UNK
     Route: 048
     Dates: start: 20140501, end: 20140507
  42. ITRIZOLE [Concomitant]
     Active Substance: ITRACONAZOLE
     Indication: PROPHYLAXIS
     Dosage: UNK
     Route: 048
  43. BAYASPIRIN [Concomitant]
     Active Substance: ASPIRIN
     Indication: PROPHYLAXIS
     Dosage: UNK
     Route: 048
  44. ALENDRONATE [Concomitant]
     Active Substance: ALENDRONATE SODIUM
     Dosage: UNK
     Route: 048
  45. SEIBULE [Concomitant]
     Active Substance: MIGLITOL
     Indication: DIABETES MELLITUS
     Dosage: UNK
     Route: 048
  46. FAMOTIDINE. [Concomitant]
     Active Substance: FAMOTIDINE
     Indication: PROPHYLAXIS
     Dosage: UNK
     Route: 048
  47. FOSAMAC [Concomitant]
     Active Substance: ALENDRONATE SODIUM
     Indication: PROPHYLAXIS
     Dosage: UNK
     Route: 048
  48. ROMIPLOSTIM [Suspect]
     Active Substance: ROMIPLOSTIM
     Dosage: 2 MUG/KG, QWK
     Route: 058
     Dates: start: 20140416, end: 20140508
  49. MEDROLONE [Suspect]
     Active Substance: METHYLPREDNISOLONE SODIUM SUCCINATE
     Dosage: 28 MG, UNK
     Route: 048
     Dates: start: 20140331, end: 20140406
  50. REVOLADE [Concomitant]
     Active Substance: ELTROMBOPAG
     Indication: IMMUNE THROMBOCYTOPENIC PURPURA
  51. BAKTAR [Concomitant]
     Active Substance: SULFAMETHOXAZOLE\TRIMETHOPRIM
     Dosage: UNK
     Route: 048
  52. SEIBULE [Concomitant]
     Active Substance: MIGLITOL
     Dosage: UNK
     Route: 048
  53. GEBEN [Concomitant]
     Active Substance: SILVER SULFADIAZINE
     Dosage: UNK
     Route: 061
  54. MEDROLONE [Suspect]
     Active Substance: METHYLPREDNISOLONE SODIUM SUCCINATE
     Dosage: 12 MG, UNK
     Route: 048
     Dates: start: 20140508, end: 20140611
  55. MEDROLONE [Suspect]
     Active Substance: METHYLPREDNISOLONE SODIUM SUCCINATE
     Dosage: 10 MG, UNK
     Route: 048
     Dates: start: 20140612, end: 20140827
  56. MEDROLONE [Suspect]
     Active Substance: METHYLPREDNISOLONE SODIUM SUCCINATE
     Dosage: 10 MG, UNK
     Route: 048
     Dates: start: 20141106, end: 20150121
  57. ALENDRONATE [Concomitant]
     Active Substance: ALENDRONATE SODIUM
     Indication: PROPHYLAXIS
     Dosage: UNK
     Route: 048
  58. LOXOPROFEN SODIUM HYDRATE [Concomitant]
     Active Substance: LOXOPROFEN SODIUM DIHYDRATE
     Indication: VASCULITIS
     Dosage: UNK
     Route: 048
  59. ROMIPLOSTIM [Suspect]
     Active Substance: ROMIPLOSTIM
     Dosage: 3 MUG/KG, QWK
     Route: 058
     Dates: start: 20140311, end: 20140402
  60. ROMIPLOSTIM [Suspect]
     Active Substance: ROMIPLOSTIM
     Dosage: 1 MUG/KG, Q3WK
     Route: 058
     Dates: start: 20140821, end: 20141113
  61. MEDROL [Suspect]
     Active Substance: METHYLPREDNISOLONE
     Dosage: 32 MILLIGRAM
     Route: 048
     Dates: start: 20140325, end: 20140330
  62. MEDROL [Suspect]
     Active Substance: METHYLPREDNISOLONE
     Dosage: 24 MG, UNK
     Route: 048
     Dates: start: 20140407, end: 20140413
  63. MEDROL [Suspect]
     Active Substance: METHYLPREDNISOLONE
     Dosage: 10 MILLIGRAM
     Route: 048
     Dates: start: 20141106, end: 20150121
  64. MEDROL [Suspect]
     Active Substance: METHYLPREDNISOLONE
     Dosage: 16 MILLIGRAM
     Route: 048
     Dates: start: 20150122, end: 20150225
  65. MEDROLONE [Suspect]
     Active Substance: METHYLPREDNISOLONE SODIUM SUCCINATE
     Dosage: 24 MG, UNK
     Route: 048
     Dates: start: 20140407, end: 20140413
  66. SOLU-CORTEF [Suspect]
     Active Substance: HYDROCORTISONE SODIUM SUCCINATE
     Indication: IMMUNE THROMBOCYTOPENIC PURPURA
     Dosage: 200 MG, UNK
     Route: 065
     Dates: start: 20140208, end: 20140208
  67. ITRIZOLE [Concomitant]
     Active Substance: ITRACONAZOLE
     Dosage: UNK
     Route: 048

REACTIONS (23)
  - Gastrointestinal perforation [Fatal]
  - Gastric perforation [Not Recovered/Not Resolved]
  - Disseminated intravascular coagulation [Recovered/Resolved]
  - Hepatic steatosis [Recovering/Resolving]
  - Hyperlipidaemia [Recovering/Resolving]
  - Skin infection [Unknown]
  - Vasculitis [Not Recovered/Not Resolved]
  - Pyoderma gangrenosum [Not Recovered/Not Resolved]
  - Bronchitis chronic [Not Recovered/Not Resolved]
  - Insomnia [Unknown]
  - Large intestine perforation [Not Recovered/Not Resolved]
  - Hepatic failure [Fatal]
  - Respiratory failure [Fatal]
  - Aspergillus infection [Not Recovered/Not Resolved]
  - Haemolytic anaemia [Recovering/Resolving]
  - Shock [Fatal]
  - Gastritis [Not Recovered/Not Resolved]
  - Pleurisy [Recovered/Resolved]
  - Gastric ulcer perforation [Not Recovered/Not Resolved]
  - Peritonitis [Fatal]
  - Diabetes mellitus [Recovering/Resolving]
  - Oedema [Not Recovered/Not Resolved]
  - Constipation [Not Recovered/Not Resolved]

NARRATIVE: CASE EVENT DATE: 20140303
